FAERS Safety Report 16320916 (Version 2)
Quarter: 2019Q3

REPORT INFORMATION
  Report Type: Spontaneous
  Country: US (occurrence: US)
  Receive Date: 20190516
  Receipt Date: 20190821
  Transmission Date: 20191004
  Serious: No
  Sender: FDA-Public Use
  Company Number: US-GLAXOSMITHKLINE-US2019083868

PATIENT
  Age: 54 Year
  Sex: Male
  Weight: 117 kg

DRUGS (2)
  1. EQUATE NICOTINE [Suspect]
     Active Substance: NICOTINE
     Dosage: 21 MG, UNK
  2. EQUATE NICOTINE [Suspect]
     Active Substance: NICOTINE
     Indication: PRODUCT USED FOR UNKNOWN INDICATION
     Dosage: 21 MG, UNK

REACTIONS (2)
  - Product complaint [Unknown]
  - Drug ineffective [Unknown]
